FAERS Safety Report 8282692-2 (Version None)
Quarter: 2012Q2

REPORT INFORMATION
  Report Type: 
  Country: None (occurrence: None)
  Receive Date: 20120413
  Receipt Date: 20120411
  Transmission Date: 20120825
  Serious: Yes (Death, Life-Threatening)
  Sender: FDA-Public Use
  Company Number: NZ-B.I. PHARMACEUTICALS,INC./RIDGEFIELD-2011-AU-01472AU

PATIENT
  Sex: Male
  Weight: 55 kg

DRUGS (8)
  1. CALCIFEROL [Concomitant]
  2. PRADAXA [Suspect]
     Indication: ATRIAL FIBRILLATION
     Dosage: 220 MG
     Route: 048
     Dates: start: 20110722, end: 20110728
  3. FUROSEMIDE [Concomitant]
     Route: 048
     Dates: end: 20110728
  4. BIMATAPROST [Concomitant]
  5. ALBUTEROL [Concomitant]
  6. ENSURE POWDER [Concomitant]
  7. FLUCLOXACILLIN [Concomitant]
     Route: 048
     Dates: start: 20110722, end: 20110722
  8. METOPROLOL TARTRATE [Concomitant]
     Route: 048
     Dates: end: 20110728

REACTIONS (2)
  - GASTROINTESTINAL HAEMORRHAGE [None]
  - DIARRHOEA [None]
